FAERS Safety Report 6316930-X (Version None)
Quarter: 2009Q3

REPORT INFORMATION
  Report Type: 
  Country: None (occurrence: None)
  Receive Date: 20090820
  Receipt Date: 20090127
  Transmission Date: 20100115
  Serious: No
  Sender: FDA-Public Use
  Company Number: US-BAYER-200911026NA

PATIENT
  Age: 9 Year
  Sex: Male
  Weight: 41 kg

DRUGS (1)
  1. MAGNEVIST [Suspect]
     Indication: NUCLEAR MAGNETIC RESONANCE IMAGING BRAIN
     Dosage: TOTAL DAILY DOSE: 9 ML  UNIT DOSE: 100 ML
     Route: 042
     Dates: start: 20090113, end: 20090113

REACTIONS (1)
  - VOMITING [None]
